FAERS Safety Report 19271239 (Version 1)
Quarter: 2021Q2

REPORT INFORMATION
  Report Type: Spontaneous
  Country: IT (occurrence: IT)
  Receive Date: 20210518
  Receipt Date: 20210518
  Transmission Date: 20210717
  Serious: Yes (Other)
  Sender: FDA-Public Use
  Company Number: IT-ALLERGAN-2113566US

PATIENT

DRUGS (2)
  1. OZURDEX [Suspect]
     Active Substance: DEXAMETHASONE
     Indication: PRODUCT USED FOR UNKNOWN INDICATION
     Dosage: 700 ?G, SINGLE
     Route: 031
     Dates: start: 20201027, end: 20201027
  2. OZURDEX [Suspect]
     Active Substance: DEXAMETHASONE
     Indication: PRODUCT USED FOR UNKNOWN INDICATION
     Dosage: 700 ?G, SINGLE
     Route: 031
     Dates: start: 20190705, end: 20190705

REACTIONS (2)
  - Drug ineffective [Unknown]
  - Macular oedema [Unknown]

NARRATIVE: CASE EVENT DATE: 20201027
